FAERS Safety Report 11552232 (Version 1)
Quarter: 2015Q3

REPORT INFORMATION
  Report Type: Spontaneous
  Country: US (occurrence: None)
  Receive Date: 20150924
  Receipt Date: 20150924
  Transmission Date: 20151125
  Serious: Yes (Disabling)
  Sender: FDA-Public Use
  Company Number: None

PATIENT
  Age: 80 Year
  Sex: Male
  Weight: 65.77 kg

DRUGS (5)
  1. OFLOXACIN. [Suspect]
     Active Substance: OFLOXACIN
     Indication: POSTOPERATIVE CARE
     Route: 031
     Dates: start: 20141205, end: 20150122
  2. SIMVASTATIN. [Concomitant]
     Active Substance: SIMVASTATIN
  3. VITAMIN D [Concomitant]
     Active Substance: CHOLECALCIFEROL
  4. OFLOXACIN. [Suspect]
     Active Substance: OFLOXACIN
     Indication: PREOPERATIVE CARE
     Route: 031
     Dates: start: 20141205, end: 20150122
  5. OFLOXACIN. [Suspect]
     Active Substance: OFLOXACIN
     Indication: CATARACT OPERATION
     Route: 031
     Dates: start: 20141205, end: 20150122

REACTIONS (11)
  - Musculoskeletal stiffness [None]
  - Weight bearing difficulty [None]
  - Mobility decreased [None]
  - Tenderness [None]
  - Weight decreased [None]
  - Myalgia [None]
  - Arthralgia [None]
  - Back pain [None]
  - Pain [None]
  - Muscular weakness [None]
  - Pain in extremity [None]
